FAERS Safety Report 19936118 (Version 4)
Quarter: 2021Q4

REPORT INFORMATION
  Report Type: Spontaneous
  Country: US (occurrence: US)
  Receive Date: 20211009
  Receipt Date: 20211210
  Transmission Date: 20220303
  Serious: Yes (Other)
  Sender: FDA-Public Use
  Company Number: US-ALXN-A202111096

PATIENT
  Sex: Male

DRUGS (1)
  1. ULTOMIRIS [Suspect]
     Active Substance: RAVULIZUMAB-CWVZ
     Indication: Paroxysmal nocturnal haemoglobinuria
     Dosage: UNK
     Route: 065

REACTIONS (5)
  - Extravascular haemolysis [Not Recovered/Not Resolved]
  - Anaemia [Unknown]
  - Mental disorder [Unknown]
  - Psychiatric symptom [Unknown]
  - Fatigue [Not Recovered/Not Resolved]
